FAERS Safety Report 5579924-8 (Version None)
Quarter: 2007Q4

REPORT INFORMATION
  Report Type: 
  Country: None (occurrence: None)
  Receive Date: 20071228
  Receipt Date: 20071217
  Transmission Date: 20080405
  Serious: Yes (Hospitalization)
  Sender: FDA-Public Use
  Company Number: 2007BI026454

PATIENT
  Age: 39 Year
  Sex: Female
  Weight: 58.5 kg

DRUGS (4)
  1. TYSABRI [Suspect]
     Indication: MULTIPLE SCLEROSIS
     Dosage: 300 MG;QM;IV
     Route: 042
     Dates: start: 20070917
  2. TIMOFEROL [Concomitant]
  3. OMEPRAZOLE [Concomitant]
  4. ZOLPIDEM [Concomitant]

REACTIONS (4)
  - BLOOD PRESSURE DECREASED [None]
  - BODY TEMPERATURE DECREASED [None]
  - DRUG TOXICITY [None]
  - SUICIDE ATTEMPT [None]
